FAERS Safety Report 13423071 (Version 2)
Quarter: 2017Q2

REPORT INFORMATION
  Report Type: Spontaneous
  Country: JP (occurrence: JP)
  Receive Date: 20170410
  Receipt Date: 20170505
  Transmission Date: 20170830
  Serious: Yes (Hospitalization)
  Sender: FDA-Public Use
  Company Number: JP-JNJFOC-20170407069

PATIENT
  Age: 76 Year
  Sex: Male
  Weight: 77 kg

DRUGS (7)
  1. CANAGLU [Suspect]
     Active Substance: CANAGLIFLOZIN
     Indication: TYPE 2 DIABETES MELLITUS
     Route: 048
     Dates: start: 20160624, end: 20160914
  2. TICLOPIDINE HYDROCHLORIDE. [Concomitant]
     Active Substance: TICLOPIDINE HYDROCHLORIDE
     Dosage: START DATE: BEFORE 2009
     Route: 048
     Dates: end: 20160914
  3. ARTIST [Concomitant]
     Active Substance: CARVEDILOL
     Dosage: START DATE: BEFORE 2009
     Route: 048
     Dates: end: 20160914
  4. NU LOTAN [Concomitant]
     Active Substance: LOSARTAN
     Dosage: START DATE: BEFORE 2009
     Route: 048
     Dates: end: 20160914
  5. CANAGLU [Suspect]
     Active Substance: CANAGLIFLOZIN
     Indication: TYPE 2 DIABETES MELLITUS
     Route: 048
     Dates: start: 20160317, end: 20160623
  6. FLUVASTATIN SODIUM. [Concomitant]
     Active Substance: FLUVASTATIN SODIUM
     Dosage: START DATE: BEFORE 2009
     Route: 048
     Dates: end: 20160914
  7. NORVASC [Concomitant]
     Active Substance: AMLODIPINE BESYLATE
     Dosage: START DATE: BEFORE 2009
     Route: 048
     Dates: end: 20160914

REACTIONS (4)
  - Ventricular tachycardia [Unknown]
  - Off label use [Unknown]
  - Dehydration [Unknown]
  - Incorrect dose administered [Unknown]

NARRATIVE: CASE EVENT DATE: 20160317
